FAERS Safety Report 10570758 (Version 4)
Quarter: 2014Q4

REPORT INFORMATION
  Report Type: Report from Study
  Country: BE (occurrence: BE)
  Receive Date: 20141107
  Receipt Date: 20141125
  Transmission Date: 20150529
  Serious: No
  Sender: FDA-Public Use
  Company Number: BE-BAYER-2014-160428

PATIENT
  Age: 49 Year
  Sex: Male

DRUGS (11)
  1. ZESTRIL [Concomitant]
     Active Substance: LISINOPRIL
     Indication: CARDIAC FAILURE
     Dosage: UNK
  2. ZESTRIL [Concomitant]
     Active Substance: LISINOPRIL
     Indication: HYPERTENSION
  3. ELTHYRONE [Concomitant]
     Active Substance: LEVOTHYROXINE
     Dosage: 75 ?G, QD
  4. SUPRADYN B [Concomitant]
  5. ZESTRIL [Concomitant]
     Active Substance: LISINOPRIL
     Indication: NEPHROPATHY
  6. NEXAVAR [Suspect]
     Active Substance: SORAFENIB
     Indication: RENAL CELL CARCINOMA
     Dosage: 1 TABLET AT 10H00 AND 2 TABLETS AT 22H00
     Dates: start: 20111118
  7. AMLODIPINE BESILATE [Concomitant]
     Active Substance: AMLODIPINE BESYLATE
     Indication: HYPERTENSION
     Dosage: UNK, QD
  8. EMCONCOR [Concomitant]
     Active Substance: BISOPROLOL FUMARATE
     Dosage: UNK
  9. OMEPRAZOLE. [Concomitant]
     Active Substance: OMEPRAZOLE
     Dosage: UNK
  10. CARDIOASPIRINE [Concomitant]
     Active Substance: ASPIRIN
     Dosage: UNK
  11. BUSCOPAN [Concomitant]
     Active Substance: BUTYLSCOPOLAMINE BROMIDE
     Dosage: UNK

REACTIONS (1)
  - Skin swelling [None]

NARRATIVE: CASE EVENT DATE: 20141008
